FAERS Safety Report 4885514-2 (Version None)
Quarter: 2006Q1

REPORT INFORMATION
  Report Type: 
  Country: None (occurrence: None)
  Receive Date: 20060119
  Receipt Date: 20030605
  Transmission Date: 20060701
  Serious: Yes (Life-Threatening, Hospitalization, Disabling, Other)
  Sender: FDA-Public Use
  Company Number: US-MERCK-0306USA00710

PATIENT
  Age: 85 Year
  Sex: Female
  Weight: 62 kg

DRUGS (10)
  1. VIOXX [Suspect]
     Indication: OSTEOARTHRITIS
     Route: 048
     Dates: start: 20000201, end: 20010208
  2. VIOXX [Suspect]
     Route: 048
     Dates: start: 20010109
  3. PROCARDIA XL [Concomitant]
     Route: 065
  4. PRINIVIL [Concomitant]
     Route: 065
  5. DIAZIDE [Concomitant]
     Route: 065
  6. SYNTHROID [Concomitant]
     Route: 065
  7. ECOTRIN [Concomitant]
     Route: 065
  8. HYDREA [Concomitant]
     Route: 065
  9. OSTEO-BI-FLEX [Concomitant]
     Route: 065
  10. COMPAZINE [Concomitant]
     Route: 065

REACTIONS (37)
  - ADVERSE EVENT [None]
  - ANGINA PECTORIS [None]
  - ASTHENIA [None]
  - BLOOD PRESSURE INCREASED [None]
  - BRONCHIAL HYPERACTIVITY [None]
  - CEREBRAL ATROPHY [None]
  - CEREBROVASCULAR ACCIDENT [None]
  - COLONIC POLYP [None]
  - CONJUNCTIVITIS ALLERGIC [None]
  - CONTUSION [None]
  - CONVULSION [None]
  - DEHYDRATION [None]
  - DEPRESSION [None]
  - DERMATOPHYTOSIS [None]
  - DISORIENTATION [None]
  - DYSPNOEA [None]
  - EXTENSOR PLANTAR RESPONSE [None]
  - FALL [None]
  - FATIGUE [None]
  - FLUID OVERLOAD [None]
  - GASTROOESOPHAGEAL REFLUX DISEASE [None]
  - HAEMATOMA [None]
  - HYPOKALAEMIA [None]
  - INSOMNIA [None]
  - LOBAR PNEUMONIA [None]
  - NAUSEA [None]
  - NEUROGENIC BLADDER [None]
  - OEDEMA PERIPHERAL [None]
  - PNEUMONIA [None]
  - PNEUMONIA ASPIRATION [None]
  - PYELONEPHRITIS [None]
  - SEPSIS [None]
  - STATUS EPILEPTICUS [None]
  - TRANSIENT ISCHAEMIC ATTACK [None]
  - URINARY RETENTION [None]
  - URINARY TRACT INFECTION [None]
  - UROSEPSIS [None]
